FAERS Safety Report 24347323 (Version 1)
Quarter: 2024Q3

REPORT INFORMATION
  Report Type: Spontaneous
  Country: GB (occurrence: GB)
  Receive Date: 20240921
  Receipt Date: 20240921
  Transmission Date: 20241017
  Serious: Yes (Other)
  Sender: DAIICHI
  Company Number: None

PATIENT
  Age: 85 Year
  Sex: Female
  Weight: 75 kg

DRUGS (14)
  1. EDOXABAN [Suspect]
     Active Substance: EDOXABAN
     Indication: Ill-defined disorder
     Dosage: UNK
     Route: 065
     Dates: start: 20240816
  2. CLOTRIMAZOLE [Concomitant]
     Active Substance: CLOTRIMAZOLE
     Indication: Ill-defined disorder
     Dosage: APPLY 2-3 TIMES/DAY WITH 1 CM MARGIN AND FOR 2 ...
     Route: 065
     Dates: start: 20240708, end: 20240805
  3. EUMOVATE [Concomitant]
     Active Substance: CLOBETASONE BUTYRATE
     Indication: Ill-defined disorder
     Dosage: 1 DOSAGE FORM, QD (APPLY THIN LAYER TO PATCH ON BACK ONCE DAILY FOR 2 WEEK))
     Route: 065
     Dates: start: 20240718, end: 20240801
  4. ESTRIOL [Concomitant]
     Active Substance: ESTRIOL
     Indication: Ill-defined disorder
     Dosage: 1 DOSAGE FORM, QD (APPLY I APPLICATOR FULL AT NIGHT FOR 3-4 WEEKS ...)
     Route: 065
     Dates: start: 20240521
  5. DIGOXIN [Concomitant]
     Active Substance: DIGOXIN
     Indication: Ill-defined disorder
     Dosage: 1 DOSAGE FORM, QD (TAKE ONE DAILY)
     Route: 065
     Dates: start: 20240524
  6. APIXABAN [Concomitant]
     Active Substance: APIXABAN
     Indication: Ill-defined disorder
     Dosage: 1 DOSAGE FORM, BID (TAKE ONE TWICE DAILY)
     Route: 065
     Dates: start: 20240524, end: 20240821
  7. LEVOTHYROXINE [Concomitant]
     Active Substance: LEVOTHYROXINE\LEVOTHYROXINE SODIUM
     Indication: Ill-defined disorder
     Dosage: 1 DOSAGE FORM, QD (TAKE ONE EACH MORNING)
     Route: 065
     Dates: start: 20240524
  8. MACROGOL COMP [Concomitant]
     Indication: Ill-defined disorder
     Dosage: TAKE ONE SACHET DAILY, AND INCREASE AS NEEDED. ...
     Route: 065
     Dates: start: 20240524
  9. ACETAMINOPHEN [Concomitant]
     Active Substance: ACETAMINOPHEN
     Indication: Ill-defined disorder
     Dosage: UNK, QID (TAKE 1 OR 2 4 TIMES/DAY)
     Route: 065
     Dates: start: 20240524
  10. PARAFFIN [Concomitant]
     Active Substance: PARAFFIN
     Indication: Ill-defined disorder
     Dosage: APPLY GENEROUSLY TO DRY OR ITCHY SKIN (CAN BE A...
     Route: 065
     Dates: start: 20240718
  11. FERROUS FUMARATE [Concomitant]
     Active Substance: FERROUS FUMARATE
     Indication: Ill-defined disorder
     Dosage: 5 ML, BID (1X5ML SPOON TWICE DAILY)
     Route: 065
     Dates: start: 20240718
  12. AMITRIPTYLINE HYDROCHLORIDE [Concomitant]
     Active Substance: AMITRIPTYLINE HYDROCHLORIDE
     Indication: Ill-defined disorder
     Dosage: 1 DOSAGE FORM, QD (TAKE ONE AT NIGHT)
     Route: 065
     Dates: start: 20240819, end: 20240821
  13. CANDESARTAN [Concomitant]
     Active Substance: CANDESARTAN
     Indication: Ill-defined disorder
     Dosage: 1 DOSAGE FORM, BID (TAKE ONE TWICE DAILY)
     Route: 065
     Dates: start: 20240821
  14. RIVAROXABAN [Concomitant]
     Active Substance: RIVAROXABAN
     Indication: Ill-defined disorder
     Dosage: 1 DOSAGE FORM, QD (TAKE ONE DAILY)
     Route: 065
     Dates: start: 20240821

REACTIONS (1)
  - Rash [Recovered/Resolved]
